FAERS Safety Report 4774626-X (Version None)
Quarter: 2005Q3

REPORT INFORMATION
  Report Type: 
  Country: None (occurrence: None)
  Receive Date: 20050921
  Receipt Date: 20050908
  Transmission Date: 20060218
  Serious: Yes (Other)
  Sender: FDA-Public Use
  Company Number: 2005AC01302

PATIENT
  Sex: Female

DRUGS (1)
  1. SEROQUEL [Suspect]
     Indication: SCHIZOPHRENIA
     Dosage: STARTED IN MAY, YEAR NOT SPECIFIED
     Route: 048

REACTIONS (1)
  - HEPATITIS [None]
